FAERS Safety Report 5229781-4 (Version None)
Quarter: 2007Q1

REPORT INFORMATION
  Report Type: 
  Country: None (occurrence: None)
  Receive Date: 20070206
  Receipt Date: 20070125
  Transmission Date: 20070707
  Serious: Yes (Other)
  Sender: FDA-Public Use
  Company Number: US-PFIZER INC-2006133871

PATIENT
  Age: 50 Year
  Sex: Female

DRUGS (6)
  1. DILANTIN [Suspect]
     Indication: CONVULSION
  2. ZYRTEC [Concomitant]
  3. METOPROLOL SUCCINATE [Concomitant]
  4. NORVASC [Concomitant]
  5. EFFEXOR [Concomitant]
  6. ALL OTHER THERAPEUTIC PRODUCTS [Concomitant]

REACTIONS (5)
  - ANOREXIA [None]
  - ANTICONVULSANT DRUG LEVEL ABNORMAL [None]
  - HYPOTONIC-HYPORESPONSIVE EPISODE [None]
  - LETHARGY [None]
  - STARING [None]
